FAERS Safety Report 23859025 (Version 1)
Quarter: 2024Q2

REPORT INFORMATION
  Report Type: Spontaneous
  Country: US (occurrence: None)
  Receive Date: 20240515
  Receipt Date: 20240515
  Transmission Date: 20240715
  Serious: Yes (Hospitalization)
  Sender: FDA-Public Use
  Company Number: None

PATIENT
  Sex: Female
  Weight: 88.5 kg

DRUGS (2)
  1. CARBOPLATIN [Suspect]
     Active Substance: CARBOPLATIN
     Dates: end: 20240419
  2. GEMCITABINE HYDROCHLORIDE [Suspect]
     Active Substance: GEMCITABINE HYDROCHLORIDE
     Dates: end: 20240419

REACTIONS (10)
  - Ventricular tachycardia [None]
  - Metabolic acidosis [None]
  - Tumour lysis syndrome [None]
  - Cholangitis [None]
  - Lactic acidosis [None]
  - Hyperbilirubinaemia [None]
  - Thrombocytopenia [None]
  - Triple negative breast cancer [None]
  - Sepsis [None]
  - Hypertransaminasaemia [None]

NARRATIVE: CASE EVENT DATE: 20240510
